FAERS Safety Report 10311980 (Version 2)
Quarter: 2014Q3

REPORT INFORMATION
  Report Type: Spontaneous
  Country: IT (occurrence: None)
  Receive Date: 20140714
  Receipt Date: 20140819
  Transmission Date: 20150326
  Serious: Yes (Other)
  Sender: FDA-Public Use
  Company Number: AUR-APL-2014-07349

PATIENT
  Age: 32 Year
  Sex: Male

DRUGS (2)
  1. PAROXETINE [Suspect]
     Active Substance: PAROXETINE\PAROXETINE HYDROCHLORIDE
     Indication: PANIC DISORDER
     Dosage: 20 MG, ONCE A DAY, UNKNOWN?
  2. PAROXETINE [Suspect]
     Active Substance: PAROXETINE\PAROXETINE HYDROCHLORIDE
     Indication: AGORAPHOBIA
     Dosage: 20 MG, ONCE A DAY, UNKNOWN?

REACTIONS (15)
  - Nervousness [None]
  - Insomnia [None]
  - Mood swings [None]
  - Irritability [None]
  - Anxiety [None]
  - Drug withdrawal syndrome [None]
  - Headache [None]
  - Panic attack [None]
  - Increased appetite [None]
  - Weight increased [None]
  - Depersonalisation [None]
  - Agitation [None]
  - Nausea [None]
  - Asthenia [None]
  - Incorrect dose administered [None]
